FAERS Safety Report 8350907-8 (Version None)
Quarter: 2012Q2

REPORT INFORMATION
  Report Type: 
  Country: None (occurrence: None)
  Receive Date: 20120510
  Receipt Date: 20120507
  Transmission Date: 20120825
  Serious: Yes (Other)
  Sender: FDA-Public Use
  Company Number: VE-PFIZER INC-2012105779

PATIENT
  Age: 70 Year
  Sex: Female

DRUGS (2)
  1. EUTHYROX [Concomitant]
     Dosage: 75 UG, 1X/DAY
     Route: 048
     Dates: start: 20020101
  2. LIPITOR [Suspect]
     Indication: HYPERCHOLESTEROLAEMIA
     Dosage: 20 MG, 1X/DAY
     Dates: start: 20110101, end: 20110101

REACTIONS (1)
  - CATARACT [None]
